FAERS Safety Report 9459577 (Version 1)
Quarter: 2013Q3

REPORT INFORMATION
  Report Type: Spontaneous
  Country: US (occurrence: US)
  Receive Date: 20130815
  Receipt Date: 20130815
  Transmission Date: 20140515
  Serious: Yes (Death)
  Sender: FDA-Public Use
  Company Number: US-GENZYME-CAMP-1003080

PATIENT
  Age: 73 Year
  Sex: Male

DRUGS (2)
  1. CAMPATH [Suspect]
     Indication: CHRONIC LYMPHOCYTIC LEUKAEMIA
     Dosage: 3 MG, ONCE
     Route: 065
     Dates: start: 20130629, end: 20130629
  2. CAMPATH [Suspect]
     Dosage: 10 MG, ONCE
     Route: 065
     Dates: start: 20130701, end: 20130701

REACTIONS (2)
  - Cardiac arrest [Fatal]
  - Septic shock [Fatal]
